FAERS Safety Report 17521249 (Version 1)
Quarter: 2020Q1

REPORT INFORMATION
  Report Type: Spontaneous
  Country: US (occurrence: US)
  Receive Date: 20200310
  Receipt Date: 20200310
  Transmission Date: 20200409
  Serious: Yes (Other)
  Sender: FDA-Public Use
  Company Number: None

PATIENT
  Age: 42 Year
  Sex: Female
  Weight: 60.75 kg

DRUGS (7)
  1. SERTRALINE HCL 50 MG TABLET (SERTRALINE) [Suspect]
     Active Substance: SERTRALINE HYDROCHLORIDE
     Indication: DEPRESSION
     Dosage: ?          QUANTITY:1 TABLET(S);?
     Route: 048
     Dates: start: 20200125, end: 20200305
  2. ALBUTEROL. [Concomitant]
     Active Substance: ALBUTEROL
  3. FISH OIL [Concomitant]
     Active Substance: FISH OIL
  4. VIT. D [Concomitant]
  5. MELATONIN [Concomitant]
     Active Substance: MELATONIN
  6. WIXELA INHUB [Concomitant]
     Active Substance: FLUTICASONE PROPIONATE\SALMETEROL XINAFOATE
  7. GLUCOSAMINE/CHONDROITIN [Concomitant]

REACTIONS (7)
  - Anxiety [None]
  - Negative thoughts [None]
  - Suicidal ideation [None]
  - Fatigue [None]
  - Nausea [None]
  - Product substitution issue [None]
  - Depression [None]

NARRATIVE: CASE EVENT DATE: 20200201
